FAERS Safety Report 5099372-7 (Version None)
Quarter: 2006Q3

REPORT INFORMATION
  Report Type: 
  Country: None (occurrence: None)
  Receive Date: 20060731
  Receipt Date: 20060622
  Transmission Date: 20061208
  Serious: No
  Sender: FDA-Public Use
  Company Number: 2006PV016195

PATIENT
  Age: 78 Year
  Sex: Male
  Weight: 90.7194 kg

DRUGS (7)
  1. BYETTA [Suspect]
     Indication: DIABETES MELLITUS NON-INSULIN-DEPENDENT
     Dosage: 5 MCG;BID;SC
     Route: 058
     Dates: start: 20060606
  2. LANTUS [Concomitant]
  3. NOVOLOG [Concomitant]
  4. ZETIA [Concomitant]
  5. COZAAR [Concomitant]
  6. AVANDIA [Concomitant]
  7. EFFEXOR [Concomitant]

REACTIONS (6)
  - ANGER [None]
  - ANXIETY [None]
  - APATHY [None]
  - BACK PAIN [None]
  - VOMITING [None]
  - WEIGHT INCREASED [None]
